FAERS Safety Report 9649460 (Version 2)
Quarter: 2013Q4

REPORT INFORMATION
  Report Type: Report from Study
  Country: GB (occurrence: GB)
  Receive Date: 20131028
  Receipt Date: 20131219
  Transmission Date: 20140711
  Serious: Yes (Death, Life-Threatening, Hospitalization)
  Sender: FDA-Public Use
  Company Number: GB-CELGENEUS-167-50794-13103315

PATIENT
  Age: 75 Year
  Sex: Male
  Weight: 70.7 kg

DRUGS (6)
  1. VIDAZA [Suspect]
     Indication: ACUTE MYELOID LEUKAEMIA
     Dosage: 138 MILLIGRAM
     Route: 058
     Dates: start: 20130930, end: 20131008
  2. VORINOSTAT [Suspect]
     Indication: ACUTE MYELOID LEUKAEMIA
     Dosage: 600 MILLIGRAM
     Route: 065
     Dates: start: 20130930, end: 20131009
  3. GRANULOCYTE COLONY-STIMULATING FACTOR NOS [Concomitant]
     Indication: NEUTROPENIA
     Route: 065
     Dates: start: 20131008
  4. PLATELETS [Concomitant]
     Indication: THROMBOCYTOPENIA
     Route: 065
     Dates: start: 20131011
  5. LAXIDO [Concomitant]
     Indication: CONSTIPATION
     Route: 065
     Dates: start: 20131004
  6. TUMULSIN [Concomitant]
     Indication: DYSURIA
     Route: 065

REACTIONS (3)
  - Cardiac arrest [Fatal]
  - Abdominal pain [Not Recovered/Not Resolved]
  - Back pain [Not Recovered/Not Resolved]
